FAERS Safety Report 4382161-6 (Version None)
Quarter: 2004Q2

REPORT INFORMATION
  Report Type: 
  Country: None (occurrence: None)
  Receive Date: 20040615
  Receipt Date: 20040109
  Transmission Date: 20050107
  Serious: Yes (Hospitalization)
  Sender: FDA-Public Use
  Company Number: DE-SHR-03-018050

PATIENT
  Age: 66 Year
  Sex: Male

DRUGS (3)
  1. QUADRAMET [Suspect]
     Indication: PROSTATE CANCER METASTATIC
     Dosage: 2861 MBQ. 1 DOSE, INTRAVENOUS
     Route: 042
     Dates: start: 20031023, end: 20031024
  2. CELEBREX (CELLECOXIB) [Concomitant]
  3. TRAMAL (TRAMADOL HYDROCHLORIDE) [Concomitant]

REACTIONS (4)
  - ASTHENIA [None]
  - FATIGUE [None]
  - FULL BLOOD COUNT DECREASED [None]
  - WEIGHT DECREASED [None]
